FAERS Safety Report 13061786 (Version 1)
Quarter: 2016Q4

REPORT INFORMATION
  Report Type: Spontaneous
  Country: US (occurrence: US)
  Receive Date: 20161226
  Receipt Date: 20161226
  Transmission Date: 20170207
  Serious: No
  Sender: FDA-Public Use
  Company Number: US-AMGEN-USASP2016179920

PATIENT
  Age: 58 Year
  Sex: Male

DRUGS (4)
  1. AZATHIOPRINE. [Concomitant]
     Active Substance: AZATHIOPRINE
  2. ENBREL [Suspect]
     Active Substance: ETANERCEPT
     Indication: RHEUMATOID ARTHRITIS
     Dosage: 50 MG, QWK
     Route: 058
  3. PREDNISONE. [Concomitant]
     Active Substance: PREDNISONE
  4. MELOXICAM. [Concomitant]
     Active Substance: MELOXICAM

REACTIONS (5)
  - Erythema [Unknown]
  - Arthralgia [Not Recovered/Not Resolved]
  - Fungal infection [Unknown]
  - Skin ulcer [Recovered/Resolved]
  - Back pain [Not Recovered/Not Resolved]
